FAERS Safety Report 10745626 (Version 1)
Quarter: 2015Q1

REPORT INFORMATION
  Report Type: Spontaneous
  Country: US (occurrence: None)
  Receive Date: 20150127
  Receipt Date: 20150127
  Transmission Date: 20150721
  Serious: No
  Sender: FDA-Public Use
  Company Number: None

PATIENT
  Age: 41 Year
  Sex: Female

DRUGS (4)
  1. RE-LUMA CREAM [Concomitant]
  2. ALBUTEROL. [Concomitant]
     Active Substance: ALBUTEROL
  3. HUMIRA [Suspect]
     Active Substance: ADALIMUMAB
     Indication: PSORIASIS
     Route: 058
     Dates: start: 20141231
  4. BENTONITE [Concomitant]
     Active Substance: BENTONITE

REACTIONS (3)
  - Injection site reaction [None]
  - Urticaria [None]
  - Dysgeusia [None]

NARRATIVE: CASE EVENT DATE: 20150122
